FAERS Safety Report 6129160-1 (Version None)
Quarter: 2009Q1

REPORT INFORMATION
  Report Type: 
  Country: None (occurrence: None)
  Receive Date: 20090320
  Receipt Date: 20090309
  Transmission Date: 20090719
  Serious: Yes (Other)
  Sender: FDA-Public Use
  Company Number: 2009AP001060

PATIENT
  Age: 70 Year
  Sex: Male

DRUGS (1)
  1. CARBAMAZEPINE [Suspect]
     Indication: EPILEPSY
     Dosage: 200 MG; BID; PO
     Route: 048
     Dates: start: 20090126, end: 20090217

REACTIONS (4)
  - ANGIOEDEMA [None]
  - HYPERSENSITIVITY [None]
  - PYREXIA [None]
  - URTICARIA [None]
